FAERS Safety Report 5585531-3 (Version None)
Quarter: 2008Q1

REPORT INFORMATION
  Report Type: 
  Country: None (occurrence: None)
  Receive Date: 20080109
  Receipt Date: 20080103
  Transmission Date: 20080703
  Serious: Yes (Other)
  Sender: FDA-Public Use
  Company Number: B0359674A

PATIENT
  Age: 29 Year
  Sex: Female

DRUGS (2)
  1. SEROXAT [Suspect]
     Route: 065
     Dates: start: 20020128
  2. PROZAC [Concomitant]
     Dates: start: 20021127

REACTIONS (14)
  - ABNORMAL DREAMS [None]
  - AGGRESSION [None]
  - ANXIETY [None]
  - ANXIETY DISORDER [None]
  - CRYING [None]
  - DEPRESSION [None]
  - DRUG WITHDRAWAL SYNDROME [None]
  - MUSCLE TWITCHING [None]
  - NERVOUSNESS [None]
  - OVERDOSE [None]
  - PANIC REACTION [None]
  - PARAESTHESIA [None]
  - SUICIDAL BEHAVIOUR [None]
  - TREMOR [None]
